FAERS Safety Report 23850417 (Version 2)
Quarter: 2024Q3

REPORT INFORMATION
  Report Type: Spontaneous
  Country: BR (occurrence: BR)
  Receive Date: 20240513
  Receipt Date: 20240924
  Transmission Date: 20241017
  Serious: Yes (Hospitalization, Other)
  Sender: LUNDBECK
  Company Number: BR-SA-SAC20240510000195

PATIENT

DRUGS (8)
  1. SABRIL [Suspect]
     Active Substance: VIGABATRIN
     Indication: Infantile spasms
     Dosage: UNK
     Route: 048
     Dates: end: 20230728
  2. AMOXICILLIN\CLAVULANIC ACID [Concomitant]
     Active Substance: AMOXICILLIN\CLAVULANIC ACID
     Indication: Product used for unknown indication
     Dosage: 500 MG, TID
  3. VALPROIC ACID [Concomitant]
     Active Substance: VALPROIC ACID
     Indication: Product used for unknown indication
     Dosage: 10 MG/KG, QD
     Dates: start: 20230727
  4. AMOXICILINA + SULBACTAM [Concomitant]
     Indication: Product used for unknown indication
     Dosage: 90 MG/KG, QD
     Dates: start: 20230722, end: 20230728
  5. AMOXICILLIN\CLAVULANATE POTASSIUM [Concomitant]
     Active Substance: AMOXICILLIN\CLAVULANATE POTASSIUM
     Indication: Product used for unknown indication
     Dosage: 72 MG/KG, QD
     Dates: start: 20230722, end: 20230722
  6. CANNABIDIOL [Concomitant]
     Active Substance: CANNABIDIOL
     Indication: Product used for unknown indication
     Dosage: 600 MG,  (600 MG, 8 DROPS 2 TIMES)
  7. TOPIRAMATE [Concomitant]
     Active Substance: TOPIRAMATE
     Indication: Product used for unknown indication
     Dosage: 100 MG, BID
  8. CLOBAZAM [Concomitant]
     Active Substance: CLOBAZAM
     Indication: Product used for unknown indication
     Dosage: 20 MG, BID

REACTIONS (16)
  - Epilepsy [Recovered/Resolved]
  - Product contamination [Unknown]
  - Poor quality product administered [Unknown]
  - Pneumonia bacterial [Recovered/Resolved]
  - Salivary hypersecretion [Recovered/Resolved]
  - Vomiting [Recovered/Resolved]
  - Compulsions [Recovered/Resolved]
  - Pyrexia [Recovered/Resolved]
  - Dyskinesia [Recovered/Resolved]
  - Aggression [Recovered/Resolved]
  - Moaning [Recovered/Resolved]
  - Pallor [Recovered/Resolved]
  - Fatigue [Recovered/Resolved]
  - Pleural effusion [Recovered/Resolved]
  - Torticollis [Recovered/Resolved]
  - Muscle spasms [Recovered/Resolved]

NARRATIVE: CASE EVENT DATE: 20230701
